FAERS Safety Report 5628636-0 (Version None)
Quarter: 2008Q1

REPORT INFORMATION
  Report Type: 
  Country: None (occurrence: None)
  Receive Date: 20080214
  Receipt Date: 20080214
  Transmission Date: 20080703
  Serious: No
  Sender: FDA-Public Use
  Company Number: None

PATIENT
  Age: 77 Year
  Sex: Male
  Weight: 84 kg

DRUGS (2)
  1. LEVOFLOXACIN [Suspect]
     Dosage: INTRAVENOUS
     Route: 042
  2. AMIODARONE HCL [Suspect]
     Dosage: ORAL
     Route: 048

REACTIONS (2)
  - BRADYCARDIA [None]
  - CARDIO-RESPIRATORY ARREST [None]
